FAERS Safety Report 18542990 (Version 2)
Quarter: 2020Q4

REPORT INFORMATION
  Report Type: Report from Study
  Country: US (occurrence: US)
  Receive Date: 20201124
  Receipt Date: 20201125
  Transmission Date: 20210114
  Serious: Yes (Hospitalization)
  Sender: FDA-Public Use
  Company Number: US-ADAMAS PHARMA, LLC-2020ADA02355

PATIENT
  Age: 59 Year
  Sex: Female
  Weight: 59 kg

DRUGS (17)
  1. CARBIDOPA/LEVODOPA [Concomitant]
     Active Substance: CARBIDOPA\LEVODOPA
     Dosage: 1.5 TABLETS, 6X/DAY
     Dates: start: 2020, end: 2020
  2. CARBIDOPA/LEVODOPA CR [Concomitant]
     Dosage: UNK
     Dates: start: 2020, end: 2020
  3. GOCOVRI [Suspect]
     Active Substance: AMANTADINE
     Dosage: UNK
     Route: 048
     Dates: start: 20201030
  4. CARBIDOPA/LEVODOPA [Concomitant]
     Active Substance: CARBIDOPA\LEVODOPA
     Dosage: 1 TABLETS, 6X/DAY
     Route: 048
     Dates: start: 2020
  5. QUETIAPINE. [Suspect]
     Active Substance: QUETIAPINE
     Dosage: 50 MG, 1X/DAY IN THE MORNING
  6. QUETIAPINE. [Suspect]
     Active Substance: QUETIAPINE
     Dosage: 75 MG, 1X/DAY AT NIGHT
  7. GABAPENTIN. [Concomitant]
     Active Substance: GABAPENTIN
     Dosage: 200 MG, 1X/DAY AT BEDTIME
     Dates: end: 2020
  8. VITAMIN D [Concomitant]
     Active Substance: VITAMIN D NOS
     Dosage: 50000 IU, 1X/WEEK
     Route: 048
  9. LEVOTHYROXINE. [Concomitant]
     Active Substance: LEVOTHYROXINE
     Dosage: 0.1 MG, 1X/DAY
     Route: 048
  10. CITALOPRAM [Concomitant]
     Active Substance: CITALOPRAM HYDROBROMIDE
     Dosage: 20 MG, 1X/DAY AT NIGHT
  11. PROPRANOLOL [Suspect]
     Active Substance: PROPRANOLOL HYDROCHLORIDE
     Dosage: 5 MG, 4X/DAY
     Route: 048
     Dates: end: 2020
  12. FLUTICASONE. [Concomitant]
     Active Substance: FLUTICASONE
     Dosage: 2 SPRAYS 1X/DAY
     Route: 045
  13. MELATONIN [Concomitant]
     Active Substance: MELATONIN
     Dosage: 10 MG, 1X/DAY AT BEDTIME
     Route: 048
  14. CARBIDOPA/LEVODOPA CR [Concomitant]
     Dosage: 2 TABLETS, 6X/DAY
     Route: 048
     Dates: start: 2020
  15. ACETAMINOPHEN. [Concomitant]
     Active Substance: ACETAMINOPHEN
     Dosage: 1000 MG, 4X/DAY AS NEEDED
     Route: 048
  16. GOCOVRI [Suspect]
     Active Substance: AMANTADINE
     Indication: PARKINSON^S DISEASE
     Dosage: 137 MG, 1X/DAY EVERY NIGHT AT BEDTIME
     Route: 048
     Dates: start: 20200429, end: 20200505
  17. GOCOVRI [Suspect]
     Active Substance: AMANTADINE
     Dosage: 274 MG, 1X/DAY EVERY NIGHT AT BEDTIME
     Route: 048
     Dates: start: 20200506, end: 2020

REACTIONS (11)
  - Mental status changes [Recovering/Resolving]
  - Somnolence [Not Recovered/Not Resolved]
  - Catatonia [Recovered/Resolved]
  - Treatment noncompliance [Unknown]
  - Paranoia [Recovering/Resolving]
  - Orthostatic hypotension [Recovered/Resolved]
  - Poor quality sleep [Unknown]
  - Thrombocytopenia [Unknown]
  - Macrocytosis [Not Recovered/Not Resolved]
  - Drug interaction [Unknown]
  - Fatigue [Unknown]

NARRATIVE: CASE EVENT DATE: 2020
